FAERS Safety Report 5374636-8 (Version None)
Quarter: 2007Q2

REPORT INFORMATION
  Report Type: 
  Country: None (occurrence: None)
  Receive Date: 20070629
  Receipt Date: 20070625
  Transmission Date: 20071010
  Serious: Yes (Other)
  Sender: FDA-Public Use
  Company Number: ES-JNJFOC-20070606134

PATIENT
  Age: 37 Year
  Sex: Male

DRUGS (6)
  1. RISPERIDONE [Suspect]
     Indication: PSYCHOTIC DISORDER
     Route: 048
  2. FLUNITRACEPAM [Concomitant]
     Indication: INSOMNIA
     Route: 048
  3. QUETIAPINA [Concomitant]
     Indication: INSOMNIA
     Route: 048
  4. ALPRAZOLAM [Concomitant]
     Indication: DRUG USE FOR UNKNOWN INDICATION
     Route: 048
  5. BIPERIDENO [Concomitant]
     Indication: MUSCLE RIGIDITY
     Route: 048
  6. CLOMIPRAMINA [Concomitant]
     Indication: OBSESSIVE THOUGHTS
     Route: 048

REACTIONS (1)
  - ANAEMIA [None]
